FAERS Safety Report 9145591 (Version 1)
Quarter: 2013Q1

REPORT INFORMATION
  Report Type: Spontaneous
  Country: US (occurrence: US)
  Receive Date: 20130307
  Receipt Date: 20130307
  Transmission Date: 20140127
  Serious: No
  Sender: FDA-Public Use
  Company Number: US-PFIZER INC-2013076577

PATIENT
  Age: 43 Year
  Sex: Male
  Weight: 76.19 kg

DRUGS (1)
  1. ADVIL [Suspect]
     Indication: PAIN
     Dosage: 400MG, 6-8 HOURS
     Route: 048
     Dates: start: 201211, end: 201211

REACTIONS (1)
  - Nausea [Recovered/Resolved]
